FAERS Safety Report 21489415 (Version 2)
Quarter: 2023Q2

REPORT INFORMATION
  Report Type: Spontaneous
  Country: US (occurrence: US)
  Receive Date: 20221021
  Receipt Date: 20230403
  Transmission Date: 20230721
  Serious: No
  Sender: FDA-Public Use
  Company Number: US-UROGEN PHARMA LTD.-2022-UGN-000096

PATIENT

DRUGS (6)
  1. JELMYTO [Suspect]
     Active Substance: MITOMYCIN
     Indication: Transitional cell cancer of the renal pelvis and ureter
     Dosage: 8 MILLILITER (INSTILLATION)
     Dates: start: 20220726, end: 20220726
  2. JELMYTO [Suspect]
     Active Substance: MITOMYCIN
     Dosage: 8 MILLILITER (INSTILLATION)
     Dates: start: 2022, end: 2022
  3. JELMYTO [Suspect]
     Active Substance: MITOMYCIN
     Dosage: 8 MILLILITER (INSTILLATION)
     Dates: start: 2022, end: 2022
  4. JELMYTO [Suspect]
     Active Substance: MITOMYCIN
     Dosage: 8 MILLILITER (INSTILLATION)
     Dates: start: 2022, end: 2022
  5. JELMYTO [Suspect]
     Active Substance: MITOMYCIN
     Dosage: 8 MILLILITER (INSTILLATION)
     Dates: start: 2022, end: 2022
  6. JELMYTO [Suspect]
     Active Substance: MITOMYCIN
     Dosage: 8 MILLILITER (INSTILLATION)
     Dates: start: 20220816, end: 20220816

REACTIONS (1)
  - Post procedural complication [Not Recovered/Not Resolved]

NARRATIVE: CASE EVENT DATE: 20220818
